FAERS Safety Report 10095321 (Version 2)
Quarter: 2014Q2

REPORT INFORMATION
  Report Type: Spontaneous
  Country: US (occurrence: US)
  Receive Date: 20140422
  Receipt Date: 20140422
  Transmission Date: 20141212
  Serious: Yes (Other)
  Sender: FDA-Public Use
  Company Number: US-GILEAD-2013-0073818

PATIENT
  Age: 70 Year
  Sex: Male

DRUGS (12)
  1. LETAIRIS [Suspect]
     Indication: PULMONARY HYPERTENSION
     Dosage: 5 MG, QD
     Route: 048
     Dates: start: 20101019
  2. LETAIRIS [Suspect]
     Indication: DYSPNOEA
  3. LETAIRIS [Suspect]
     Indication: RESPIRATORY FAILURE
  4. BUPROPION [Concomitant]
  5. METOLAZONE [Concomitant]
  6. DULERA [Concomitant]
  7. CARAFATE [Concomitant]
  8. CHONDROITIN [Concomitant]
  9. GINSENG                            /01384001/ [Concomitant]
  10. BYSTOLIC [Concomitant]
  11. ACETYLCYSTEINE [Concomitant]
  12. SPIRIVA [Concomitant]

REACTIONS (3)
  - Weight increased [Unknown]
  - Oedema [Not Recovered/Not Resolved]
  - Dyspnoea [Unknown]
